FAERS Safety Report 9064426 (Version 2)
Quarter: 2013Q1

REPORT INFORMATION
  Report Type: Spontaneous
  Country: FR (occurrence: FR)
  Receive Date: 20130130
  Receipt Date: 20130314
  Transmission Date: 20140127
  Serious: Yes (Other)
  Sender: FDA-Public Use
  Company Number: FR-BAYER-2013-011695

PATIENT
  Sex: Female
  Weight: 46 kg

DRUGS (1)
  1. QLAIRA [Suspect]
     Dosage: UNK
     Dates: start: 201003, end: 2012

REACTIONS (1)
  - Ruptured cerebral aneurysm [Recovered/Resolved]
